FAERS Safety Report 16664700 (Version 1)
Quarter: 2019Q3

REPORT INFORMATION
  Report Type: Spontaneous
  Country: FR (occurrence: FR)
  Receive Date: 20190803
  Receipt Date: 20190803
  Transmission Date: 20191004
  Serious: Yes (Hospitalization)
  Sender: FDA-Public Use
  Company Number: FR-AUROBINDO-AUR-APL-2019-044863

PATIENT

DRUGS (3)
  1. ALENDRONIC ACID [Suspect]
     Active Substance: ALENDRONIC ACID
     Indication: OSTEOPOROSIS PROPHYLAXIS
     Dosage: 70 MILLIGRAM, EVERY WEEK
     Route: 048
     Dates: start: 20190627, end: 20190627
  2. VINCRISTINE TEVA [Suspect]
     Active Substance: VINCRISTINE
     Indication: B-CELL LYMPHOMA
     Dosage: 1.4 GRAM PER SQUARE METRE, 2 MILLIGRAM
     Route: 041
     Dates: start: 20190619, end: 20190619
  3. RIXATHON [Suspect]
     Active Substance: RITUXIMAB
     Indication: B-CELL LYMPHOMA
     Dosage: 700 MILLIGRAM
     Route: 041
     Dates: start: 20190521, end: 20190521

REACTIONS (1)
  - Rash morbilliform [Unknown]

NARRATIVE: CASE EVENT DATE: 20190628
